FAERS Safety Report 25971688 (Version 2)
Quarter: 2025Q4

REPORT INFORMATION
  Report Type: Spontaneous
  Country: EU (occurrence: EU)
  Receive Date: 20251029
  Receipt Date: 20251030
  Transmission Date: 20260118
  Serious: Yes (Other)
  Sender: IPSEN BIOPHARMACEUTICALS, INC.
  Company Number: EU-IPSEN Group, Research and Development-2025-26445

PATIENT
  Sex: Male

DRUGS (2)
  1. ODEVIXIBAT [Suspect]
     Active Substance: ODEVIXIBAT
     Indication: Product used for unknown indication
  2. VITAMIN D [Concomitant]
     Active Substance: VITAMIN D NOS
     Dosage: 500 IE OD

REACTIONS (4)
  - Liver transplant [Unknown]
  - Pruritus [Unknown]
  - Iron deficiency [Unknown]
  - Hypersplenism [Unknown]
